FAERS Safety Report 9606147 (Version 2)
Quarter: 2013Q4

REPORT INFORMATION
  Report Type: Other
  Country: GB (occurrence: GB)
  Receive Date: 20131008
  Receipt Date: 20131008
  Transmission Date: 20140711
  Serious: Yes (Hospitalization)
  Sender: FDA-Public Use
  Company Number: GB-TAKEDA-THQ2013A01356

PATIENT
  Sex: 0

DRUGS (17)
  1. LANSOPRAZOLE [Suspect]
     Indication: PRODUCT USED FOR UNKNOWN INDICATION
     Dosage: 30 MG, QD
     Route: 048
  2. AMOXICILLIN [Suspect]
     Indication: PRODUCT USED FOR UNKNOWN INDICATION
     Dosage: SINGLE (1 DOSE ADMINISTERED)
     Route: 048
     Dates: start: 20110310, end: 20110310
  3. CLARITHROMYCIN [Suspect]
     Indication: PRODUCT USED FOR UNKNOWN INDICATION
     Dosage: SINGLE (1 DOSE ADMINISTERED)
     Route: 048
     Dates: start: 20110310, end: 20110310
  4. LEVOFLOXACIN [Suspect]
     Indication: PRODUCT USED FOR UNKNOWN INDICATION
     Dosage: 500 MG, BID
     Route: 042
     Dates: start: 20110311, end: 20110321
  5. MEROPENEM [Suspect]
     Indication: PRODUCT USED FOR UNKNOWN INDICATION
     Route: 042
     Dates: start: 20110312, end: 20110321
  6. FLUCLOXACILLIN [Suspect]
     Indication: PRODUCT USED FOR UNKNOWN INDICATION
     Dosage: 4 DOSES ADMINISTERED
     Route: 048
     Dates: start: 20110329, end: 20110330
  7. TEICOPLANIN [Suspect]
     Indication: PRODUCT USED FOR UNKNOWN INDICATION
     Dosage: 1.2 G LOADING DOSE
     Route: 042
     Dates: start: 20110310
  8. TEICOPLANIN [Suspect]
     Dosage: 800 MG, QD
     Route: 042
     Dates: start: 20110311, end: 20110314
  9. ERYTHROMYCIN [Suspect]
     Indication: GASTROINTESTINAL MOTILITY DISORDER
     Dosage: 125 MG, TID
     Route: 042
     Dates: start: 20110314, end: 20110317
  10. LOPERAMIDE [Concomitant]
     Dates: start: 20110503
  11. HYOSCINE BUTYLBROMIDE [Concomitant]
     Dates: start: 20110503
  12. FLUOXETINE [Concomitant]
     Dosage: UNK UNK, QD
  13. NICOTINE [Concomitant]
  14. PARACETAMOL [Concomitant]
  15. DALTEPARIN [Concomitant]
  16. FUROSEMIDE [Concomitant]
     Dosage: UNK UNK, BID
  17. FERROUS SULPHATE [Concomitant]
     Dosage: UNK UNK, QD

REACTIONS (1)
  - Clostridium difficile colitis [Recovered/Resolved]
